FAERS Safety Report 22223763 (Version 1)
Quarter: 2023Q2

REPORT INFORMATION
  Report Type: Spontaneous
  Country: US (occurrence: None)
  Receive Date: 20230417
  Receipt Date: 20230417
  Transmission Date: 20230721
  Serious: Yes (unspecified)
  Sender: FDA-Public Use
  Company Number: None

PATIENT
  Age: 16 Year
  Sex: Female
  Weight: 49.95 kg

DRUGS (1)
  1. MEDROXYPROGESTERONE [Suspect]
     Active Substance: MEDROXYPROGESTERONE
     Indication: Contraception
     Dosage: 150 MG ONCE INTRAMUSCULAR
     Route: 030
     Dates: start: 20230313

REACTIONS (8)
  - Pruritus [None]
  - Dizziness [None]
  - Swelling face [None]
  - Oxygen saturation decreased [None]
  - Tachycardia [None]
  - Hypotension [None]
  - Abdominal pain [None]
  - Adverse drug reaction [None]

NARRATIVE: CASE EVENT DATE: 20230313
